FAERS Safety Report 26107589 (Version 1)
Quarter: 2025Q4

REPORT INFORMATION
  Report Type: Spontaneous
  Country: US (occurrence: None)
  Receive Date: 20251126
  Receipt Date: 20251126
  Transmission Date: 20260117
  Serious: Yes (Death)
  Sender: FDA-CTU
  Company Number: None

PATIENT
  Age: 100 Year
  Sex: Male

DRUGS (11)
  1. VELTASSA [Suspect]
     Active Substance: PATIROMER
     Indication: Hyperkalaemia
     Dosage: FREQUENCY : DAILY;?
     Route: 048
     Dates: start: 20231214, end: 20251028
  2. METAMUCIL SMOOTH ORANGE FLAVOR [Concomitant]
  3. MIRALAX 3350 POWDER PACKETS [Concomitant]
  4. BETIMOL 0.5% OPHTHALMIC SOLN 1 0ML [Concomitant]
  5. ELIQLJIS 2.5MG TABLETS [Concomitant]
  6. FLJROSEMIDE 20MG TABLETS [Concomitant]
  7. PRESERVISION LUTEIN CAPSULES [Concomitant]
  8. FEBUXOSTAT [Concomitant]
     Active Substance: FEBUXOSTAT
  9. PREGABALIN [Concomitant]
     Active Substance: PREGABALIN
  10. FISH OIL 1 000MG CAPSULES [Concomitant]
  11. VITAMIN B-121000MCG TABLETS [Concomitant]

REACTIONS (1)
  - Death [None]

NARRATIVE: CASE EVENT DATE: 20251028
